FAERS Safety Report 9557170 (Version 1)
Quarter: 2013Q3

REPORT INFORMATION
  Report Type: Spontaneous
  Country: US (occurrence: US)
  Receive Date: 20130926
  Receipt Date: 20130926
  Transmission Date: 20140515
  Serious: No
  Sender: FDA-Public Use
  Company Number: US-B.I. PHARMACEUTICALS,INC./RIDGEFIELD-2013-BI-29536BP

PATIENT
  Age: 70 Year
  Sex: Female
  Weight: 68 kg

DRUGS (1)
  1. SPIRIVA [Suspect]
     Indication: BACTERIAL INFECTION
     Dosage: 18 MCG
     Route: 055
     Dates: start: 201308, end: 20130919

REACTIONS (5)
  - Cheilitis [Not Recovered/Not Resolved]
  - Cheilitis [Not Recovered/Not Resolved]
  - Impaired healing [Not Recovered/Not Resolved]
  - Cheilitis [Not Recovered/Not Resolved]
  - Off label use [Not Recovered/Not Resolved]
